FAERS Safety Report 16715130 (Version 2)
Quarter: 2020Q2

REPORT INFORMATION
  Report Type: Spontaneous
  Country: US (occurrence: US)
  Receive Date: 20190819
  Receipt Date: 20200506
  Transmission Date: 20200713
  Serious: Yes (Other)
  Sender: FDA-Public Use
  Company Number: US-PFIZER INC-2019352729

PATIENT
  Age: 62 Year
  Sex: Female
  Weight: 68.49 kg

DRUGS (2)
  1. LYRICA [Suspect]
     Active Substance: PREGABALIN
     Indication: NERVE INJURY
     Dosage: 200 MG, 3X/DAY
     Route: 048
     Dates: start: 2010
  2. PREMARIN [Concomitant]
     Active Substance: ESTROGENS, CONJUGATED

REACTIONS (6)
  - Weight fluctuation [Unknown]
  - Intentional product use issue [Unknown]
  - Pain in extremity [Unknown]
  - Memory impairment [Unknown]
  - Peripheral swelling [Unknown]
  - Seizure [Unknown]
